FAERS Safety Report 26115626 (Version 1)
Quarter: 2025Q4

REPORT INFORMATION
  Report Type: Spontaneous
  Country: US (occurrence: US)
  Receive Date: 20251203
  Receipt Date: 20251203
  Transmission Date: 20260117
  Serious: No
  Sender: TEVA
  Company Number: US-TEVA-VS-3394409

PATIENT
  Age: 48 Year
  Sex: Male

DRUGS (1)
  1. AUSTEDO [Suspect]
     Active Substance: DEUTETRABENAZINE
     Indication: Huntington^s disease
     Route: 048

REACTIONS (4)
  - Bone pain [Not Recovered/Not Resolved]
  - Contusion [Unknown]
  - Treatment noncompliance [Unknown]
  - Fall [Unknown]
